FAERS Safety Report 16564178 (Version 1)
Quarter: 2019Q3

REPORT INFORMATION
  Report Type: Spontaneous
  Country: JP (occurrence: JP)
  Receive Date: 20190712
  Receipt Date: 20190712
  Transmission Date: 20191004
  Serious: Yes (Other)
  Sender: FDA-Public Use
  Company Number: JP-INGENUS PHARMACEUTICALS, LLC-2019INF000213

PATIENT
  Age: 74 Year
  Sex: Male

DRUGS (3)
  1. OXALIPLATIN. [Suspect]
     Active Substance: OXALIPLATIN
     Indication: GASTRIC CANCER STAGE IV
     Dosage: 130 MILLIGRAM PER BODY
     Route: 065
  2. TS-1 [Suspect]
     Active Substance: GIMERACIL\OTERACIL\TEGAFUR
     Indication: GASTRIC CANCER STAGE IV
     Dosage: 80 MILLIGRAM, QD
     Route: 065
  3. TRASTUZUMAB. [Suspect]
     Active Substance: TRASTUZUMAB
     Indication: GASTRIC CANCER STAGE IV
     Dosage: 225 MILLIGRAM PER BODY
     Route: 065

REACTIONS (4)
  - Cognitive disorder [Recovering/Resolving]
  - Decreased appetite [Unknown]
  - Vomiting [Unknown]
  - Diarrhoea [Unknown]
